FAERS Safety Report 4353669-4 (Version None)
Quarter: 2004Q2

REPORT INFORMATION
  Report Type: 
  Country: None (occurrence: None)
  Receive Date: 20040430
  Receipt Date: 20040420
  Transmission Date: 20050107
  Serious: Yes (Death, Hospitalization, Other)
  Sender: FDA-Public Use
  Company Number: 2004209984DE

PATIENT
  Age: 66 Year
  Sex: Male

DRUGS (20)
  1. CAMPTOSAR [Suspect]
     Indication: COLON CANCER METASTATIC
     Dosage: SEE IMAGE
     Route: 042
     Dates: start: 20040224, end: 20040224
  2. CAMPTOSAR [Suspect]
     Indication: COLON CANCER METASTATIC
     Dosage: SEE IMAGE
     Route: 042
     Dates: start: 20040224, end: 20040224
  3. CAMPTOSAR [Suspect]
     Indication: COLON CANCER METASTATIC
     Dosage: SEE IMAGE
     Route: 042
     Dates: start: 20040406, end: 20040406
  4. ZD1839(GEFITINIB) [Suspect]
     Indication: COLON CANCER METASTATIC
     Dosage: 1100 MG/M2
     Dates: start: 20040406, end: 20040406
  5. CAPECITABINE (CAPECITABINE) [Suspect]
     Indication: COLON CANCER METASTATIC
  6. OMEPRAZOLE [Concomitant]
  7. INSULIN HUMAN (INSULIN HUMAN) [Concomitant]
  8. LOPERAMIDE HCL [Concomitant]
  9. EMEND [Concomitant]
  10. TRAMADOL HCL [Concomitant]
  11. MCP ^CT-ARZNEIMITTEL^ [Concomitant]
  12. ROFECOXIB [Concomitant]
  13. KEVATRIL [Concomitant]
  14. DEXAMETHASONE [Concomitant]
  15. ATROPINE [Concomitant]
  16. ASS-WOELM [Concomitant]
  17. NOCTAMID (LORAMETAQZEPAM) [Concomitant]
  18. MUNOBAL [Concomitant]
  19. ARANESP [Concomitant]
  20. NAVOBAN (TROPISETRON HYDROCHLORIDE) [Concomitant]

REACTIONS (17)
  - ABDOMINAL RIGIDITY [None]
  - ARTHRALGIA [None]
  - COLON CANCER [None]
  - DIARRHOEA [None]
  - FATIGUE [None]
  - GENERAL PHYSICAL HEALTH DETERIORATION [None]
  - MALIGNANT NEOPLASM PROGRESSION [None]
  - METASTASES TO LUNG [None]
  - METASTASES TO THORAX [None]
  - NAUSEA [None]
  - NIGHT SWEATS [None]
  - OEDEMA [None]
  - PULMONARY OEDEMA [None]
  - RENAL FAILURE [None]
  - RESPIRATORY FAILURE [None]
  - STOMATITIS [None]
  - VOMITING [None]
